FAERS Safety Report 10089547 (Version 1)
Quarter: 2014Q2

REPORT INFORMATION
  Report Type: Spontaneous
  Country: US (occurrence: None)
  Receive Date: 20140418
  Receipt Date: 20140418
  Transmission Date: 20141212
  Serious: Yes (Hospitalization)
  Sender: FDA-Public Use
  Company Number: None

PATIENT
  Age: 65 Year
  Sex: Male
  Weight: 79.6 kg

DRUGS (4)
  1. BELATACEPT [Suspect]
     Indication: RENAL TRANSPLANT
     Dosage: 900 MG, Q2W, IV
     Route: 042
     Dates: start: 20140316
  2. CELLCEPT [Suspect]
     Indication: RENAL TRANSPLANT
     Route: 048
     Dates: start: 20140316
  3. ALEMTUZUMAB INDUCTION [Concomitant]
  4. METHYLPREDNISONE TAPER [Concomitant]

REACTIONS (3)
  - Abdominal pain lower [None]
  - Hypertension [None]
  - Chest pain [None]
